FAERS Safety Report 23936228 (Version 1)
Quarter: 2024Q2

REPORT INFORMATION
  Report Type: Report from Study
  Country: CN (occurrence: CN)
  Receive Date: 20240604
  Receipt Date: 20240604
  Transmission Date: 20240716
  Serious: Yes (Other)
  Sender: FDA-Public Use
  Company Number: CN-JNJFOC-20240576609

PATIENT

DRUGS (1)
  1. REMICADE [Suspect]
     Active Substance: INFLIXIMAB
     Indication: Inflammatory bowel disease
     Route: 041

REACTIONS (24)
  - Demyelination [Unknown]
  - Meningitis listeria [Unknown]
  - Optic neuritis [Unknown]
  - Multiple sclerosis [Unknown]
  - Demyelinating polyneuropathy [Unknown]
  - Guillain-Barre syndrome [Unknown]
  - Myelitis transverse [Unknown]
  - Central nervous system infection [Unknown]
  - Chronic inflammatory demyelinating polyradiculoneuropathy [Unknown]
  - Multifocal motor neuropathy [Unknown]
  - Progressive multifocal leukoencephalopathy [Unknown]
  - Facial paralysis [Unknown]
  - Encephalopathy [Unknown]
  - Miller Fisher syndrome [Unknown]
  - Leukoencephalopathy [Unknown]
  - Posterior reversible encephalopathy syndrome [Unknown]
  - Mononeuropathy multiplex [Unknown]
  - Muscular weakness [Unknown]
  - Gait disturbance [Unknown]
  - Cognitive disorder [Unknown]
  - Cerebrovascular disorder [Unknown]
  - Peripheral sensory neuropathy [Unknown]
  - Peripheral motor neuropathy [Unknown]
  - Axonal neuropathy [Unknown]
